FAERS Safety Report 8206852-1 (Version None)
Quarter: 2012Q1

REPORT INFORMATION
  Report Type: 
  Country: None (occurrence: None)
  Receive Date: 20120227
  Receipt Date: 20120104
  Transmission Date: 20120608
  Serious: No
  Sender: FDA-Public Use
  Company Number: 341666

PATIENT
  Age: 67 Year
  Sex: Female

DRUGS (2)
  1. VICTOZA [Suspect]
     Indication: DIABETES MELLITUS
     Dosage: 1.8 MG, QD
     Dates: start: 20100101
  2. LANTUS [Concomitant]

REACTIONS (3)
  - DIARRHOEA [None]
  - CONSTIPATION [None]
  - NAUSEA [None]
